FAERS Safety Report 12447910 (Version 1)
Quarter: 2016Q2

REPORT INFORMATION
  Report Type: Spontaneous
  Country: US (occurrence: US)
  Receive Date: 20160608
  Receipt Date: 20160608
  Transmission Date: 20160815
  Serious: No
  Sender: FDA-Public Use
  Company Number: US-BAYER-2016-111937

PATIENT
  Age: 81 Year
  Sex: Male
  Weight: 72.56 kg

DRUGS (5)
  1. NORVASC [Concomitant]
     Active Substance: AMLODIPINE BESYLATE
  2. LIPITOR [Concomitant]
     Active Substance: ATORVASTATIN CALCIUM
  3. FINASTERIDE. [Concomitant]
     Active Substance: FINASTERIDE
  4. MIRALAX [Suspect]
     Active Substance: POLYETHYLENE GLYCOL 3350
     Dosage: 1 DF, QD
     Dates: start: 20160527
  5. WARFARIN [Concomitant]
     Active Substance: WARFARIN

REACTIONS (1)
  - Product use issue [None]

NARRATIVE: CASE EVENT DATE: 20160527
